FAERS Safety Report 9121078 (Version 1)
Quarter: 2013Q1

REPORT INFORMATION
  Report Type: Spontaneous
  Country: US (occurrence: US)
  Receive Date: 20130226
  Receipt Date: 20130226
  Transmission Date: 20140127
  Serious: Yes (Other)
  Sender: FDA-Public Use
  Company Number: US-ROCHE-1192572

PATIENT
  Age: 66 Year
  Sex: Female

DRUGS (4)
  1. RANIBIZUMAB [Suspect]
     Indication: PRODUCT USED FOR UNKNOWN INDICATION
     Route: 050
     Dates: start: 200608
  2. RANIBIZUMAB [Suspect]
     Route: 050
     Dates: start: 201205, end: 201205
  3. VISUDYNE [Concomitant]
     Route: 065
     Dates: start: 200906
  4. VISUDYNE [Concomitant]
     Route: 065
     Dates: start: 201001

REACTIONS (3)
  - Choroidal neovascularisation [Unknown]
  - Retinal degeneration [Unknown]
  - Disease progression [Unknown]
